FAERS Safety Report 20482509 (Version 1)
Quarter: 2022Q1

REPORT INFORMATION
  Report Type: Spontaneous
  Country: RO (occurrence: RO)
  Receive Date: 20220217
  Receipt Date: 20220217
  Transmission Date: 20220423
  Serious: Yes (Death, Other)
  Sender: FDA-Public Use
  Company Number: RO-AstraZeneca-2022A066459

PATIENT

DRUGS (3)
  1. ZOLADEX [Suspect]
     Active Substance: GOSERELIN ACETATE
     Indication: Product used for unknown indication
     Dosage: UNK
     Route: 058
  2. ZOLADEX [Suspect]
     Active Substance: GOSERELIN ACETATE
     Indication: Product used for unknown indication
     Dosage: UNK
     Route: 065
  3. FULVESTRANT [Suspect]
     Active Substance: FULVESTRANT
     Indication: Product used for unknown indication
     Dosage: UNK
     Route: 030

REACTIONS (3)
  - Death [Fatal]
  - Malignant neoplasm progression [Unknown]
  - Diabetes mellitus inadequate control [Unknown]
